FAERS Safety Report 20837828 (Version 2)
Quarter: 2022Q2

REPORT INFORMATION
  Report Type: Spontaneous
  Country: AU (occurrence: AU)
  Receive Date: 20220517
  Receipt Date: 20220519
  Transmission Date: 20220720
  Serious: Yes (Other)
  Sender: FDA-Public Use
  Company Number: AU-002147023-NVSC2022AU105824

PATIENT
  Sex: Male

DRUGS (1)
  1. LUCENTIS [Suspect]
     Active Substance: RANIBIZUMAB
     Indication: Macular degeneration
     Route: 065
     Dates: start: 2016

REACTIONS (7)
  - Retinal injury [Unknown]
  - Hypertension [Unknown]
  - Retinal tear [Unknown]
  - Blindness [Unknown]
  - Visual acuity reduced [Not Recovered/Not Resolved]
  - Vitreous floaters [Unknown]
  - Injection site pain [Unknown]
